FAERS Safety Report 7424034-8 (Version None)
Quarter: 2011Q2

REPORT INFORMATION
  Report Type: 
  Country: None (occurrence: None)
  Receive Date: 20110419
  Receipt Date: 20101029
  Transmission Date: 20111010
  Serious: Yes (Hospitalization)
  Sender: FDA-Public Use
  Company Number: US-BAYER-201022157NA

PATIENT
  Age: 47 Year
  Sex: Female

DRUGS (13)
  1. ORTHO TRI-CYCLEN LO [Concomitant]
     Indication: MENSTRUATION IRREGULAR
     Dosage: UNK
  2. YAZ [Suspect]
     Indication: CONTRACEPTION
     Route: 048
     Dates: start: 20081101, end: 20090201
  3. ZOLOFT [Concomitant]
  4. OSCAL [Concomitant]
  5. PHENDIMETRAZINE TARTRATE [Concomitant]
     Dosage: 35 MG, TID
  6. CLONAZEPAM [Concomitant]
  7. PHENTERMINE [Concomitant]
  8. MULTI-VITAMIN [Concomitant]
  9. YASMIN [Suspect]
     Indication: ORAL CONTRACEPTION
  10. DUAC [Concomitant]
  11. SERTRALINE [Concomitant]
  12. ORTHO TRI-CYCLEN LO [Concomitant]
     Indication: MUSCLE SPASMS
  13. PERCOCET [Concomitant]

REACTIONS (7)
  - DYSPNOEA [None]
  - OXYGEN SATURATION DECREASED [None]
  - PULMONARY EMBOLISM [None]
  - PAIN IN EXTREMITY [None]
  - BACK PAIN [None]
  - DEEP VEIN THROMBOSIS [None]
  - PAIN [None]
